FAERS Safety Report 7703798-X (Version None)
Quarter: 2011Q3

REPORT INFORMATION
  Report Type: 
  Country: None (occurrence: None)
  Receive Date: 20110823
  Receipt Date: 20110812
  Transmission Date: 20111222
  Serious: Yes (Hospitalization, Other)
  Sender: FDA-Public Use
  Company Number: US-ROCHE-724032

PATIENT
  Sex: Female
  Weight: 86.2 kg

DRUGS (18)
  1. ALPRAZOLAM [Concomitant]
  2. HYDROCODONE BITARTRATE [Concomitant]
     Dosage: COMPOUND
  3. CIPROFLOXACIN [Concomitant]
  4. ACCUTANE [Suspect]
     Indication: ACNE
     Route: 065
     Dates: start: 19860101
  5. REMICADE [Suspect]
     Dosage: DOSE OF 8-10 MG/KG
     Route: 042
     Dates: start: 20080101
  6. SOLAQUIN FORTE CREAM [Concomitant]
     Dates: start: 19990608
  7. PCE [Concomitant]
  8. CIPROFLOXACIN [Concomitant]
  9. ACCUTANE [Suspect]
     Dosage: 20 MG DAILY X 7 DAYS
     Route: 065
     Dates: start: 19910117, end: 19910124
  10. ACCUTANE [Suspect]
     Route: 065
     Dates: start: 20021017, end: 20021031
  11. SYNALAR OINTMENT [Concomitant]
     Dosage: TID FOR 4 DAYS
     Dates: start: 19990604, end: 19990608
  12. ACCUTANE [Suspect]
     Route: 065
     Dates: start: 19910125, end: 19910222
  13. ACCUTANE [Suspect]
     Route: 065
     Dates: start: 19990223, end: 19990414
  14. ACCUTANE [Suspect]
     Route: 065
     Dates: start: 19990805, end: 19991007
  15. ACCUTANE [Suspect]
     Route: 065
     Dates: start: 19990415, end: 19990526
  16. ACCUTANE [Suspect]
     Dosage: INCREASED DOSE
     Route: 065
     Dates: start: 20021108, end: 20021221
  17. TRIPHASIL-28 [Concomitant]
  18. ACCUTANE [Suspect]
     Dosage: 20 MG 4 X PER WEEK AND 40 MG 3 X PER WEEK
     Route: 065
     Dates: start: 19990527, end: 19990731

REACTIONS (26)
  - ADJUSTMENT DISORDER WITH MIXED ANXIETY AND DEPRESSED MOOD [None]
  - DIARRHOEA [None]
  - ABDOMINAL PAIN [None]
  - RESPIRATORY TRACT CONGESTION [None]
  - PSYCHOTIC DISORDER [None]
  - URINARY TRACT INFECTION [None]
  - COLITIS ULCERATIVE [None]
  - INFLAMMATORY BOWEL DISEASE [None]
  - PYREXIA [None]
  - SINUSITIS [None]
  - BRONCHITIS [None]
  - IRRITABLE BOWEL SYNDROME [None]
  - NAUSEA [None]
  - CHEILITIS [None]
  - DYSPHAGIA [None]
  - CROHN'S DISEASE [None]
  - DEPRESSION [None]
  - DEFAECATION URGENCY [None]
  - VOMITING [None]
  - WEIGHT DECREASED [None]
  - MUSCULOSKELETAL STIFFNESS [None]
  - DRY EYE [None]
  - LIP DRY [None]
  - OROPHARYNGEAL PAIN [None]
  - INTESTINAL OBSTRUCTION [None]
  - UPPER RESPIRATORY TRACT INFECTION [None]
